FAERS Safety Report 14304467 (Version 1)
Quarter: 2017Q4

REPORT INFORMATION
  Report Type: Spontaneous
  Country: JP (occurrence: JP)
  Receive Date: 20171219
  Receipt Date: 20171219
  Transmission Date: 20180321
  Serious: Yes (Hospitalization)
  Sender: FDA-Public Use
  Company Number: JP-OTSUKA-007567

PATIENT
  Age: 40 Year
  Sex: Male
  Weight: 59.7 kg

DRUGS (16)
  1. VALERIN [Concomitant]
     Active Substance: VALPROATE SODIUM
     Indication: AGITATION
     Dosage: 200 MG, QD
     Route: 048
     Dates: start: 20090526, end: 20090526
  2. GASMOTIN [Concomitant]
     Active Substance: MOSAPRIDE CITRATE
     Indication: GASTROOESOPHAGEAL REFLUX DISEASE
     Dosage: 5 MG, BID
     Route: 048
     Dates: start: 20090407, end: 200910
  3. CONTOMIN [Concomitant]
     Active Substance: CHLORPROMAZINE
     Indication: AGITATION
     Dosage: 50 MG, BID
     Route: 048
     Dates: start: 20090413, end: 20090611
  4. AKINETON [Concomitant]
     Active Substance: BIPERIDEN HYDROCHLORIDE
     Indication: PROPHYLAXIS
     Dosage: 5 MG, QD
     Route: 030
     Dates: start: 20090526, end: 20090526
  5. MAGNESIUM OXIDE. [Concomitant]
     Active Substance: MAGNESIUM OXIDE
     Indication: CONSTIPATION
     Dosage: 0.5 G, BID
     Route: 048
     Dates: start: 20090428, end: 200910
  6. TAKEPRON [Concomitant]
     Active Substance: LANSOPRAZOLE
     Indication: GASTROOESOPHAGEAL REFLUX DISEASE
     Dosage: 15 MG, BID
     Route: 048
     Dates: end: 200910
  7. LODOPIN [Concomitant]
     Active Substance: ZOTEPINE
     Indication: AGITATION
     Dosage: 150 MG, QD
     Route: 048
     Dates: start: 20090424, end: 20090608
  8. THEO-DUR [Concomitant]
     Active Substance: THEOPHYLLINE ANHYDROUS
     Indication: ASTHMA
     Dosage: 200 MG, QD
     Route: 048
     Dates: start: 20090516, end: 200910
  9. AKINETON [Concomitant]
     Active Substance: BIPERIDEN HYDROCHLORIDE
     Indication: PARKINSONISM
     Dosage: 1 MG, BID
     Route: 048
     Dates: end: 200910
  10. KIPRES JPN [Concomitant]
     Indication: ASTHMA
     Dosage: 10 MG, QD
     Route: 048
     Dates: start: 20090516, end: 200910
  11. QUETIAPINE FUMARATE. [Suspect]
     Active Substance: QUETIAPINE FUMARATE
     Dosage: UNK
     Dates: end: 20090525
  12. ABILIFY [Suspect]
     Active Substance: ARIPIPRAZOLE
     Indication: HALLUCINATION
     Dosage: 24 MG, QD
     Route: 048
     Dates: start: 20090525, end: 20090526
  13. ABILIFY [Suspect]
     Active Substance: ARIPIPRAZOLE
     Indication: DELUSION
  14. ABILIFY [Suspect]
     Active Substance: ARIPIPRAZOLE
     Indication: SCHIZOPHRENIA
  15. UNIPHYL LA TABLETS 400MG [Concomitant]
     Dosage: FORMULATION: TABS
     Dates: start: 20090516, end: 200910
  16. KIPRESS [Concomitant]
     Dosage: FORMULATION: TABS  KIPRESS JPN
     Dates: start: 20090516, end: 200910

REACTIONS (2)
  - Persecutory delusion [Recovering/Resolving]
  - Agitation [Recovering/Resolving]

NARRATIVE: CASE EVENT DATE: 20090526
